FAERS Safety Report 8472691-X (Version None)
Quarter: 2012Q2

REPORT INFORMATION
  Report Type: 
  Country: None (occurrence: None)
  Receive Date: 20120627
  Receipt Date: 20120618
  Transmission Date: 20120825
  Serious: Yes (Hospitalization, Other)
  Sender: FDA-Public Use
  Company Number: US-ASTRAZENECA-2012SE40751

PATIENT
  Sex: Male
  Weight: 108.9 kg

DRUGS (5)
  1. ASPIRIN [Concomitant]
  2. TAMSULOSIN HCL [Concomitant]
  3. PROPRANOLOL [Concomitant]
  4. SEROQUEL XR [Suspect]
     Indication: BIPOLAR DISORDER
     Route: 048
     Dates: start: 20100101, end: 20120601
  5. SEROQUEL XR [Suspect]
     Route: 048
     Dates: start: 20120601

REACTIONS (9)
  - VISION BLURRED [None]
  - BLOOD GLUCOSE INCREASED [None]
  - ACUTE LUNG INJURY [None]
  - WEIGHT INCREASED [None]
  - VISUAL IMPAIRMENT [None]
  - PNEUMONIA [None]
  - ASPIRATION [None]
  - OFF LABEL USE [None]
  - DIZZINESS [None]
